FAERS Safety Report 25887242 (Version 1)
Quarter: 2025Q4

REPORT INFORMATION
  Report Type: Spontaneous
  Country: EU (occurrence: EU)
  Receive Date: 20251006
  Receipt Date: 20251006
  Transmission Date: 20260118
  Serious: Yes (Other)
  Sender: ALEXION PHARMACEUTICALS
  Company Number: EU-AstraZeneca-CH-00963098A

PATIENT
  Age: 54 Year
  Sex: Male

DRUGS (1)
  1. IMFINZI [Suspect]
     Active Substance: DURVALUMAB
     Indication: Cholangiocarcinoma
     Route: 065

REACTIONS (4)
  - Febrile neutropenia [Unknown]
  - Immune-mediated adrenal insufficiency [Unknown]
  - Splenic infarction [Unknown]
  - Immune-mediated proctitis [Unknown]

NARRATIVE: CASE EVENT DATE: 20240501
